FAERS Safety Report 6870913-X (Version None)
Quarter: 2010Q3

REPORT INFORMATION
  Report Type: 
  Country: None (occurrence: None)
  Receive Date: 20100723
  Receipt Date: 20100715
  Transmission Date: 20110219
  Serious: Yes (Hospitalization)
  Sender: FDA-Public Use
  Company Number: JP-ASTRAZENECA-2010SE34034

PATIENT
  Age: 84 Year
  Sex: Female

DRUGS (10)
  1. SEROQUEL [Suspect]
     Route: 048
  2. VESICARE [Suspect]
     Route: 048
  3. GOSHAJINKIGAN [Concomitant]
     Route: 048
  4. YOKUKAN-SAN [Concomitant]
     Route: 048
  5. LENDORMIN [Concomitant]
     Route: 048
  6. DESYREL [Concomitant]
     Route: 048
  7. PROTECADIN [Concomitant]
     Route: 048
  8. ALOSENN [Concomitant]
     Route: 048
  9. VITAMEDIN [Concomitant]
     Route: 048
  10. RIZE [Concomitant]
     Route: 048

REACTIONS (1)
  - DEMENTIA [None]
